FAERS Safety Report 23734978 (Version 1)
Quarter: 2024Q2

REPORT INFORMATION
  Report Type: Spontaneous
  Country: FR (occurrence: FR)
  Receive Date: 20240412
  Receipt Date: 20240412
  Transmission Date: 20240716
  Serious: Yes (Other)
  Sender: FDA-Public Use
  Company Number: FR-ABBVIE-5693328

PATIENT
  Age: 57 Year
  Sex: Male

DRUGS (1)
  1. ADALIMUMAB [Suspect]
     Active Substance: ADALIMUMAB\ISOPROPYL ALCOHOL
     Indication: Spondylitis
     Dosage: UNK
     Route: 058

REACTIONS (7)
  - Myelodysplastic syndrome [Unknown]
  - Neutrophilic dermatosis [Unknown]
  - Iridocyclitis [Unknown]
  - Perichondritis [Unknown]
  - Inflammatory bowel disease [Unknown]
  - Erythema [Unknown]
  - Vasculitis [Unknown]

NARRATIVE: CASE EVENT DATE: 20120101
